FAERS Safety Report 10570795 (Version 1)
Quarter: 2014Q4

REPORT INFORMATION
  Report Type: Spontaneous
  Country: US (occurrence: None)
  Receive Date: 20141106
  Receipt Date: 20141106
  Transmission Date: 20150529
  Serious: No
  Sender: FDA-Public Use
  Company Number: None

PATIENT
  Age: 57 Year
  Sex: Female

DRUGS (1)
  1. CYCLOPHOSPHAMIDE 50MG CAP ROXANE [Suspect]
     Active Substance: CYCLOPHOSPHAMIDE
     Indication: PLASMA CELL MYELOMA
     Dosage: 450MG WEEKLY ORAL
     Route: 048
     Dates: start: 20140829

REACTIONS (3)
  - Vomiting [None]
  - Oesophageal irritation [None]
  - Product substitution issue [None]

NARRATIVE: CASE EVENT DATE: 20141103
